FAERS Safety Report 19242123 (Version 2)
Quarter: 2021Q2

REPORT INFORMATION
  Report Type: Spontaneous
  Country: FR (occurrence: FR)
  Receive Date: 20210511
  Receipt Date: 20210525
  Transmission Date: 20210717
  Serious: Yes (Hospitalization, Other)
  Sender: FDA-Public Use
  Company Number: FR-SHILPA MEDICARE LIMITED-SML-FR-2021-00353

PATIENT
  Age: 61 Year
  Sex: Male
  Weight: 78 kg

DRUGS (12)
  1. ATEZOLIZUMAB. [Suspect]
     Active Substance: ATEZOLIZUMAB
     Route: 040
     Dates: start: 20210218
  2. YTTRIUM?90 [Suspect]
     Active Substance: YTTRIUM CHLORIDE Y-90
     Indication: COLORECTAL CANCER METASTATIC
     Dosage: DATE OF LAST DOSE OF YTTRIUM (90 Y): 28/JAN/2021
     Route: 065
     Dates: start: 20210128
  3. KARDEGIC [Concomitant]
     Active Substance: ASPIRIN DL-LYSINE
     Indication: PRODUCT USED FOR UNKNOWN INDICATION
  4. PARACETAMOL [Concomitant]
     Active Substance: ACETAMINOPHEN
     Indication: PAIN
     Dosage: 6 G/DAY
     Dates: start: 20210225, end: 20210302
  5. CAPECITABINA, UNKNOWN [Suspect]
     Active Substance: CAPECITABINE
     Indication: COLORECTAL CANCER METASTATIC
     Dosage: DATE OF LAST DOSE OF CAPECITABINE: 18/FEB/2021
     Route: 048
     Dates: start: 20201214
  6. OXALIPLATIN. [Suspect]
     Active Substance: OXALIPLATIN
     Route: 041
     Dates: start: 20210413
  7. COVERAM [Concomitant]
     Active Substance: AMLODIPINE\PERINDOPRIL
     Indication: HYPERTENSION
  8. ATEZOLIZUMAB. [Suspect]
     Active Substance: ATEZOLIZUMAB
     Indication: COLORECTAL CANCER METASTATIC
     Route: 041
     Dates: start: 20201214
  9. OXALIPLATIN. [Suspect]
     Active Substance: OXALIPLATIN
     Indication: COLORECTAL CANCER METASTATIC
     Dosage: DATE OF LAST DOSE OF OXALIPLATIN: 18/FEB/2021
     Route: 041
     Dates: start: 20201214
  10. OXALIPLATIN. [Suspect]
     Active Substance: OXALIPLATIN
     Route: 041
     Dates: start: 20210218
  11. BEVACIZUMAB. [Suspect]
     Active Substance: BEVACIZUMAB
     Indication: COLORECTAL CANCER METASTATIC
     Dosage: DATE OF LAST DOSE ADMINISTRERED: 18/FEB/2021
     Route: 041
     Dates: start: 20210218
  12. METFORMIN [Concomitant]
     Active Substance: METFORMIN HYDROCHLORIDE
     Indication: TYPE 2 DIABETES MELLITUS

REACTIONS (3)
  - Cholangitis [Recovered/Resolved]
  - Pyrexia [Recovering/Resolving]
  - Abdominal pain [Recovered/Resolved]

NARRATIVE: CASE EVENT DATE: 20210305
